FAERS Safety Report 18763778 (Version 1)
Quarter: 2021Q1

REPORT INFORMATION
  Report Type: Spontaneous
  Country: TR (occurrence: TR)
  Receive Date: 20210120
  Receipt Date: 20210120
  Transmission Date: 20210419
  Serious: Yes (Other)
  Sender: FDA-Public Use
  Company Number: TR-LUPIN PHARMACEUTICALS INC.-2021-00368

PATIENT
  Age: 62 Year
  Sex: Male

DRUGS (6)
  1. HYDROXYCHLOROQUINE [Suspect]
     Active Substance: HYDROXYCHLOROQUINE
     Indication: COVID-19
     Dosage: UNK
     Route: 065
  2. METHYLPREDNISOLONE. [Suspect]
     Active Substance: METHYLPREDNISOLONE
     Indication: COVID-19
     Dosage: 1 MILLIGRAM/KILOGRAM
     Route: 065
  3. FAVIPIRAVIR [Suspect]
     Active Substance: FAVIPIRAVIR
     Indication: COVID-19
     Dosage: 1600 MILLIGRAM, BID
     Route: 065
  4. CEFTRIAXONE. [Suspect]
     Active Substance: CEFTRIAXONE
     Indication: COVID-19
     Dosage: 1 GRAM, BID
     Route: 065
  5. OSELTAMIVIR PHOSPHATE. [Suspect]
     Active Substance: OSELTAMIVIR PHOSPHATE
     Indication: COVID-19
     Dosage: UNK
     Route: 065
  6. FAVIPIRAVIR [Suspect]
     Active Substance: FAVIPIRAVIR
     Dosage: 600 MILLIGRAM, BID
     Route: 065

REACTIONS (1)
  - Off label use [Unknown]
